FAERS Safety Report 8795498 (Version 2)
Quarter: 2015Q3

REPORT INFORMATION
  Report Type: Report from Study
  Country: US (occurrence: US)
  Receive Date: 20120917
  Receipt Date: 20150706
  Transmission Date: 20151125
  Serious: Yes (Death, Other)
  Sender: FDA-Public Use
  Company Number: US-ROCHE-1124934

PATIENT
  Sex: Female
  Weight: 65 kg

DRUGS (27)
  1. HERCEPTIN [Suspect]
     Active Substance: TRASTUZUMAB
     Indication: BREAST CANCER FEMALE
     Route: 065
     Dates: start: 20040427
  2. GEMZAR [Concomitant]
     Active Substance: GEMCITABINE HYDROCHLORIDE
     Route: 065
     Dates: start: 20040427
  3. KLOR-CON [Concomitant]
     Active Substance: POTASSIUM CHLORIDE
  4. AMBIEN [Concomitant]
     Active Substance: ZOLPIDEM TARTRATE
  5. FISH OIL [Concomitant]
     Active Substance: FISH OIL
  6. FUROSEMIDE. [Concomitant]
     Active Substance: FUROSEMIDE
  7. PHENYTOIN. [Concomitant]
     Active Substance: PHENYTOIN
  8. CYANOCOBALAMIN. [Concomitant]
     Active Substance: CYANOCOBALAMIN
  9. PYRIDOXINE [Concomitant]
     Active Substance: PYRIDOXINE
  10. ASPIRIN. [Concomitant]
     Active Substance: ASPIRIN
  11. SYNTHROID [Concomitant]
     Active Substance: LEVOTHYROXINE SODIUM
  12. CARBOPLATIN. [Concomitant]
     Active Substance: CARBOPLATIN
     Route: 065
  13. AVASTIN [Suspect]
     Active Substance: BEVACIZUMAB
     Route: 042
     Dates: start: 20050705
  14. DOXIL [Concomitant]
     Active Substance: DOXORUBICIN HYDROCHLORIDE
  15. NEURONTIN [Concomitant]
     Active Substance: GABAPENTIN
  16. FOLACIN [Concomitant]
     Active Substance: FOLIC ACID
  17. OXYCODONE [Concomitant]
     Active Substance: OXYCODONE
  18. ANZEMET [Concomitant]
     Active Substance: DOLASETRON MESYLATE
     Route: 065
  19. DECADRON [Concomitant]
     Active Substance: DEXAMETHASONE
     Route: 048
  20. DEXAMETHASONE. [Concomitant]
     Active Substance: DEXAMETHASONE
  21. XELODA [Suspect]
     Active Substance: CAPECITABINE
     Indication: BREAST CANCER FEMALE
     Route: 065
     Dates: start: 20050607
  22. NAVELBINE [Concomitant]
     Active Substance: VINORELBINE TARTRATE
  23. GLIBENCLAMIDE [Concomitant]
     Active Substance: GLYBURIDE
     Route: 065
  24. METFORMIN [Concomitant]
     Active Substance: METFORMIN HYDROCHLORIDE
     Route: 065
  25. DILANTIN [Concomitant]
     Active Substance: PHENYTOIN
     Route: 065
  26. AVASTIN [Suspect]
     Active Substance: BEVACIZUMAB
     Indication: BREAST CANCER FEMALE
     Route: 042
     Dates: start: 20050705
  27. DOXYCYCLINE. [Concomitant]
     Active Substance: DOXYCYCLINE

REACTIONS (34)
  - Rash [Unknown]
  - Metastases to lung [Unknown]
  - Abdominal discomfort [Unknown]
  - Oedema peripheral [Unknown]
  - Dyspnoea [Unknown]
  - Nasopharyngitis [Unknown]
  - Central nervous system lesion [Unknown]
  - Brain neoplasm [Unknown]
  - Pulmonary mass [Unknown]
  - Calcinosis [Unknown]
  - Renal cyst [Unknown]
  - Peripheral swelling [Unknown]
  - Anaemia [Unknown]
  - Cardiac failure congestive [Unknown]
  - Nuclear magnetic resonance imaging brain abnormal [Unknown]
  - Salivary gland neoplasm [Unknown]
  - Pyrexia [Unknown]
  - Pleural effusion [Unknown]
  - Seizure [Unknown]
  - Death [Fatal]
  - Mastoid disorder [Unknown]
  - Vasogenic cerebral oedema [Unknown]
  - Drug intolerance [Unknown]
  - Metastases to bone [Unknown]
  - Tenderness [Unknown]
  - Constipation [Unknown]
  - Lung infiltration [Recovered/Resolved]
  - Mass [Unknown]
  - Off label use [Unknown]
  - Metastases to central nervous system [Unknown]
  - Feeling abnormal [Recovering/Resolving]
  - Neutropenia [Unknown]
  - Ejection fraction decreased [Unknown]
  - Hilar lymphadenopathy [Unknown]
